FAERS Safety Report 16339243 (Version 2)
Quarter: 2020Q4

REPORT INFORMATION
  Report Type: Spontaneous
  Country: US (occurrence: US)
  Receive Date: 20190521
  Receipt Date: 20201224
  Transmission Date: 20210113
  Serious: Yes (Other)
  Sender: FDA-Public Use
  Company Number: US-TAKEDA-2019TUS030447

PATIENT

DRUGS (20)
  1. LANTUS [Concomitant]
     Active Substance: INSULIN GLARGINE
     Indication: DIABETES MELLITUS
     Dosage: UNK
  2. HYTRIN [Concomitant]
     Active Substance: TERAZOSIN HYDROCHLORIDE
     Indication: HYPERTENSION
     Dosage: UNK
  3. VITAMIN E [Concomitant]
     Active Substance: .ALPHA.-TOCOPHEROL
     Indication: VITAMIN E DEFICIENCY
     Dosage: UNK
  4. PRILOSEC [Suspect]
     Active Substance: OMEPRAZOLE MAGNESIUM
     Indication: GASTROOESOPHAGEAL REFLUX DISEASE
     Dosage: 20 MILLIGRAM
     Route: 048
     Dates: start: 201110, end: 201309
  5. POMALYST [Concomitant]
     Active Substance: POMALIDOMIDE
     Indication: PLASMA CELL MYELOMA
     Dosage: UNK
  6. ULORIC [Concomitant]
     Active Substance: FEBUXOSTAT
     Indication: GOUT
     Dosage: UNK
  7. ESOMEPRAZOLE. [Suspect]
     Active Substance: ESOMEPRAZOLE MAGNESIUM
     Indication: GASTROOESOPHAGEAL REFLUX DISEASE
     Dosage: 20 MILLIGRAM, QD
     Route: 048
     Dates: start: 20171120, end: 20180719
  8. FERROUS SULFATE. [Concomitant]
     Active Substance: FERROUS SULFATE
     Indication: IRON DEFICIENCY
     Dosage: UNK
  9. ASPIRIN [ACETYLSALICYLIC ACID] [Concomitant]
     Active Substance: ASPIRIN
     Dosage: UNK
  10. PREVACID [Suspect]
     Active Substance: LANSOPRAZOLE
     Indication: PRODUCT USED FOR UNKNOWN INDICATION
     Dosage: UNK
     Route: 048
  11. NEXIUM [Suspect]
     Active Substance: ESOMEPRAZOLE MAGNESIUM
     Indication: GASTROOESOPHAGEAL REFLUX DISEASE
     Dosage: 20 MILLIGRAM, BID
     Route: 048
     Dates: start: 2014, end: 20170514
  12. OMEPRAZOLE. [Suspect]
     Active Substance: OMEPRAZOLE
     Dosage: QD
     Route: 048
     Dates: start: 2012, end: 2017
  13. LANSOPRAZOLE. [Suspect]
     Active Substance: LANSOPRAZOLE
     Indication: GASTROOESOPHAGEAL REFLUX DISEASE
     Dosage: 30 MILLIGRAM, QD
     Route: 048
     Dates: start: 20150608, end: 20170210
  14. NEXIUM 24HR [Suspect]
     Active Substance: ESOMEPRAZOLE MAGNESIUM
     Indication: GASTROOESOPHAGEAL REFLUX DISEASE
     Dosage: UNK
     Route: 048
     Dates: start: 2012, end: 2017
  15. OMEPRAZOLE. [Suspect]
     Active Substance: OMEPRAZOLE
     Indication: GASTROOESOPHAGEAL REFLUX DISEASE
     Dosage: 20 MILLIGRAM, QD
     Route: 048
     Dates: start: 20141114, end: 20170206
  16. PRAVASTATIN. [Concomitant]
     Active Substance: PRAVASTATIN
     Indication: BLOOD CHOLESTEROL ABNORMAL
     Dosage: UNK
  17. METOLAZONE. [Concomitant]
     Active Substance: METOLAZONE
     Indication: BLOOD PRESSURE ABNORMAL
     Dosage: UNK
  18. VASCEPA [Concomitant]
     Active Substance: ICOSAPENT ETHYL
     Indication: CARDIAC DISORDER
     Dosage: UNK
  19. METOLAZONE. [Concomitant]
     Active Substance: METOLAZONE
     Indication: FLUID RETENTION
  20. VITAMIN D3 [Concomitant]
     Active Substance: CHOLECALCIFEROL
     Indication: VITAMIN D DEFICIENCY
     Dosage: UNK

REACTIONS (2)
  - End stage renal disease [Not Recovered/Not Resolved]
  - Chronic kidney disease [Not Recovered/Not Resolved]

NARRATIVE: CASE EVENT DATE: 201503
